FAERS Safety Report 4445639-2 (Version None)
Quarter: 2004Q3

REPORT INFORMATION
  Report Type: 
  Country: None (occurrence: None)
  Receive Date: 20040907
  Receipt Date: 20040813
  Transmission Date: 20050211
  Serious: Yes (Life-Threatening, Hospitalization)
  Sender: FDA-Public Use
  Company Number: GBS040815415

PATIENT
  Age: 91 Year
  Sex: Female

DRUGS (6)
  1. CEPHALEXIN [Suspect]
     Indication: URINARY TRACT INFECTION
     Dosage: 250 MG
     Dates: start: 20040727, end: 20040727
  2. FRUSEMIDE [Concomitant]
  3. ASPIRIN [Concomitant]
  4. DIGOXIN [Concomitant]
  5. LISINOPRIL [Concomitant]
  6. LANSOPRAZOLE [Concomitant]

REACTIONS (2)
  - DIARRHOEA [None]
  - DYSPNOEA [None]
